FAERS Safety Report 24972881 (Version 2)
Quarter: 2025Q1

REPORT INFORMATION
  Report Type: Spontaneous
  Country: MX (occurrence: MX)
  Receive Date: 20250215
  Receipt Date: 20250218
  Transmission Date: 20250408
  Serious: Yes (Other)
  Sender: BOEHRINGER INGELHEIM
  Company Number: MX-BoehringerIngelheim-2025-BI-008479

PATIENT
  Age: 71 Year
  Sex: Male
  Weight: 114 kg

DRUGS (5)
  1. LINAGLIPTIN\METFORMIN HYDROCHLORIDE [Suspect]
     Active Substance: LINAGLIPTIN\METFORMIN HYDROCHLORIDE
     Indication: Drug therapy
     Dosage: 02 TABLETS PER DAY
     Dates: start: 2015
  2. ASPIRIN [Concomitant]
     Active Substance: ASPIRIN
     Indication: Product used for unknown indication
  3. HUMALOG MIX75/25 [Concomitant]
     Active Substance: INSULIN LISPRO
     Indication: Drug therapy
     Dosage: IN THE NIGHT (BEFORE MEAL)
     Dates: start: 202006
  4. HUMALOG MIX75/25 [Concomitant]
     Active Substance: INSULIN LISPRO
     Dosage: IN THE MORNING
     Dates: start: 202006
  5. INSULIN GLARGINE [Concomitant]
     Active Substance: INSULIN GLARGINE
     Indication: Product used for unknown indication

REACTIONS (4)
  - Brain oedema [Unknown]
  - Hyperglycaemia [Recovered/Resolved]
  - Cerebral microinfarction [Unknown]
  - Cataract [Recovered/Resolved]

NARRATIVE: CASE EVENT DATE: 20240701
